FAERS Safety Report 16817126 (Version 1)
Quarter: 2019Q3

REPORT INFORMATION
  Report Type: Report from Study
  Country: US (occurrence: US)
  Receive Date: 20190917
  Receipt Date: 20190917
  Transmission Date: 20191005
  Serious: Yes (Other)
  Sender: FDA-Public Use
  Company Number: US-UPSHER-SMITH LABORATORIES, LLC-2019USL00699

PATIENT
  Sex: Female

DRUGS (2)
  1. QUDEXY XR [Suspect]
     Active Substance: TOPIRAMATE
     Indication: MIGRAINE
     Dosage: UNK, 1X/DAY
     Dates: start: 20190725, end: 20190807
  2. QUDEXY XR [Suspect]
     Active Substance: TOPIRAMATE
     Dosage: UNK, EVERY 48 HOURS
     Dates: start: 20190808, end: 20190821

REACTIONS (1)
  - Seizure [Unknown]

NARRATIVE: CASE EVENT DATE: 20190826
